FAERS Safety Report 7700626-3 (Version None)
Quarter: 2011Q3

REPORT INFORMATION
  Report Type: 
  Country: None (occurrence: None)
  Receive Date: 20110822
  Receipt Date: 20110822
  Transmission Date: 20111222
  Serious: No
  Sender: FDA-Public Use
  Company Number: None

PATIENT
  Age: 55 Year
  Sex: Female
  Weight: 65.77 kg

DRUGS (1)
  1. ZOLPIDEM TARTRATE [Suspect]
     Indication: INSOMNIA
     Dosage: 1 PILL
     Route: 048
     Dates: start: 20010910, end: 20110817

REACTIONS (6)
  - HEADACHE [None]
  - NIGHTMARE [None]
  - PRODUCT MEASURED POTENCY ISSUE [None]
  - DRUG INEFFECTIVE [None]
  - MARITAL PROBLEM [None]
  - PRODUCT SUBSTITUTION ISSUE [None]
